FAERS Safety Report 14997160 (Version 3)
Quarter: 2019Q2

REPORT INFORMATION
  Report Type: Spontaneous
  Country: US (occurrence: US)
  Receive Date: 20180611
  Receipt Date: 20190617
  Transmission Date: 20190711
  Serious: Yes (Other)
  Sender: FDA-Public Use
  Company Number: US-ASTRAZENECA-2018SE73931

PATIENT
  Age: 20216 Day
  Sex: Female

DRUGS (29)
  1. LIVALO [Concomitant]
     Active Substance: PITAVASTATIN CALCIUM
  2. NEXIUM [Suspect]
     Active Substance: ESOMEPRAZOLE MAGNESIUM
     Indication: GASTROOESOPHAGEAL REFLUX DISEASE
     Route: 048
     Dates: start: 2000, end: 2014
  3. LASIX [Concomitant]
     Active Substance: FUROSEMIDE
  4. METOPROLOL SUCCINATE. [Concomitant]
     Active Substance: METOPROLOL SUCCINATE
  5. LEVOFLOXACIN. [Concomitant]
     Active Substance: LEVOFLOXACIN
  6. BENZONATATE. [Concomitant]
     Active Substance: BENZONATATE
  7. NEXIUM 24HR [Suspect]
     Active Substance: ESOMEPRAZOLE MAGNESIUM
     Indication: GASTROOESOPHAGEAL REFLUX DISEASE
     Route: 048
     Dates: start: 2003, end: 2014
  8. DYMISTA [Concomitant]
     Active Substance: AZELASTINE HYDROCHLORIDE\FLUTICASONE PROPIONATE
  9. BETAMETHASONE. [Concomitant]
     Active Substance: BETAMETHASONE
  10. LOSARTAN. [Concomitant]
     Active Substance: LOSARTAN
  11. NABUMETONE. [Concomitant]
     Active Substance: NABUMETONE
  12. PREVACID [Suspect]
     Active Substance: LANSOPRAZOLE
     Route: 048
     Dates: start: 2003, end: 2014
  13. LIDOCAIN [Concomitant]
     Active Substance: LIDOCAINE
  14. ATORVASTATIN [Concomitant]
     Active Substance: ATORVASTATIN
  15. ZETIA [Concomitant]
     Active Substance: EZETIMIBE
  16. NEXIUM [Suspect]
     Active Substance: ESOMEPRAZOLE MAGNESIUM
     Indication: GASTROOESOPHAGEAL REFLUX DISEASE
     Route: 048
     Dates: start: 2003, end: 2014
  17. ALDACTAZIDE [Concomitant]
     Active Substance: HYDROCHLOROTHIAZIDE\SPIRONOLACTONE
  18. FENOFIBRATE. [Concomitant]
     Active Substance: FENOFIBRATE
  19. PREDNISONE. [Concomitant]
     Active Substance: PREDNISONE
  20. BETAMETHASONE. [Concomitant]
     Active Substance: BETAMETHASONE
  21. FLECTOR [Concomitant]
     Active Substance: DICLOFENAC EPOLAMINE
  22. NEXIUM [Suspect]
     Active Substance: ESOMEPRAZOLE MAGNESIUM
     Indication: GASTROOESOPHAGEAL REFLUX DISEASE
     Route: 048
     Dates: start: 20140905
  23. AMLODIPINE [Concomitant]
     Active Substance: AMLODIPINE BESYLATE
  24. TRANSDERM [Concomitant]
  25. CRESTOR [Concomitant]
     Active Substance: ROSUVASTATIN CALCIUM
  26. INDOMETHACIN. [Concomitant]
     Active Substance: INDOMETHACIN
  27. PREVACID [Suspect]
     Active Substance: LANSOPRAZOLE
     Route: 048
     Dates: start: 2000, end: 2014
  28. MOTRIN [Concomitant]
     Active Substance: IBUPROFEN
  29. AMLODIPINE [Concomitant]
     Active Substance: AMLODIPINE BESYLATE

REACTIONS (3)
  - Chronic kidney disease [Unknown]
  - Oesophageal carcinoma [Unknown]
  - Renal impairment [Unknown]

NARRATIVE: CASE EVENT DATE: 20150807
